FAERS Safety Report 4475525-3 (Version None)
Quarter: 2004Q4

REPORT INFORMATION
  Report Type: 
  Country: None (occurrence: None)
  Receive Date: 20041015
  Receipt Date: 20041011
  Transmission Date: 20050328
  Serious: Yes (Other)
  Sender: FDA-Public Use
  Company Number: DE-BRISTOL-MYERS SQUIBB COMPANY-12727335

PATIENT
  Age: 10 Year
  Sex: Male

DRUGS (6)
  1. IFOSFAMIDE [Suspect]
     Indication: EWING'S SARCOMA
     Dosage: RE-ADMINISTERED IN CONSOLIDATION CYCLE
  2. DOXORUBICIN HCL [Concomitant]
     Indication: EWING'S SARCOMA
  3. ETOPOSIDE [Concomitant]
     Indication: EWING'S SARCOMA
  4. VINCRISTINE [Concomitant]
     Indication: EWING'S SARCOMA
     Dosage: ALSO ADMINISTERED IN CONSOLIDATION CYCLE
  5. CYCLOPHOSPHAMIDE [Concomitant]
     Indication: EWING'S SARCOMA
  6. ACTINOMYCIN D [Concomitant]
     Indication: EWING'S SARCOMA
     Dosage: CONSOLIDATION CYCLE

REACTIONS (1)
  - ATRIAL TACHYCARDIA [None]
